FAERS Safety Report 4311486-5 (Version None)
Quarter: 2004Q1

REPORT INFORMATION
  Report Type: 
  Country: None (occurrence: None)
  Receive Date: 20040302
  Receipt Date: 20040116
  Transmission Date: 20041129
  Serious: No
  Sender: FDA-Public Use
  Company Number: 200326123BWH

PATIENT
  Age: 74 Year
  Sex: Male

DRUGS (11)
  1. LEVITRA [Suspect]
     Indication: ERECTILE DYSFUNCTION
     Dosage: 10 MG, ONCE, ORAL
     Route: 048
     Dates: start: 20031014
  2. DIGOXIN [Concomitant]
  3. LIPITOR [Concomitant]
  4. GLUCOPHAGE [Concomitant]
  5. TAMBOCOR [Concomitant]
  6. GLYBURIDE [Concomitant]
  7. AVANDIA [Concomitant]
  8. CARDIZEM [Concomitant]
  9. WARFARIN SODIUM [Concomitant]
  10. DHEA [Concomitant]
  11. MULTIVITAMIN [Concomitant]

REACTIONS (1)
  - ERECTILE DYSFUNCTION [None]
